FAERS Safety Report 8209660-0 (Version None)
Quarter: 2012Q1

REPORT INFORMATION
  Report Type: 
  Country: None (occurrence: None)
  Receive Date: 20120314
  Receipt Date: 20120308
  Transmission Date: 20120608
  Serious: Yes (Other)
  Sender: FDA-Public Use
  Company Number: FI-PFIZER INC-2012062011

PATIENT
  Age: 55 Year
  Sex: Female

DRUGS (1)
  1. EFFEXOR [Suspect]
     Dosage: UNK
     Dates: end: 20120302

REACTIONS (6)
  - BEDRIDDEN [None]
  - DIARRHOEA [None]
  - DIZZINESS [None]
  - PARAESTHESIA [None]
  - WITHDRAWAL SYNDROME [None]
  - VISUAL IMPAIRMENT [None]
